FAERS Safety Report 7506885-4 (Version None)
Quarter: 2011Q2

REPORT INFORMATION
  Report Type: 
  Country: None (occurrence: None)
  Receive Date: 20110526
  Receipt Date: 20110511
  Transmission Date: 20111010
  Serious: No
  Sender: FDA-Public Use
  Company Number: US-B.I. PHARMACEUTICALS,INC./RIDGEFIELD-2011-BP-12823BP

PATIENT
  Age: 69 Year
  Sex: Male

DRUGS (7)
  1. ATENOLOL [Concomitant]
     Route: 048
  2. LOTRIL [Concomitant]
     Route: 048
  3. SIMVASTATIN [Concomitant]
     Indication: HYPERCHOLESTEROLAEMIA
     Dosage: 40 MG
     Route: 048
  4. POTASSIUM CHLORIDE [Concomitant]
     Dosage: 40 MG
     Route: 048
  5. PRADAXA [Suspect]
     Indication: ATRIAL FIBRILLATION
     Dosage: 300 MG
     Route: 048
     Dates: start: 20110425, end: 20110501
  6. PRADAXA [Suspect]
     Dosage: 300 MG
     Route: 048
     Dates: start: 20110507
  7. LASIX [Concomitant]
     Dosage: 40 MG
     Route: 048

REACTIONS (1)
  - VISION BLURRED [None]
